FAERS Safety Report 8905497 (Version 2)
Quarter: 2013Q1

REPORT INFORMATION
  Report Type: Spontaneous
  Country: CA (occurrence: CA)
  Receive Date: 20121111
  Receipt Date: 20130227
  Transmission Date: 20140127
  Serious: Yes (Death)
  Sender: FDA-Public Use
  Company Number: PHHY2010CA44207

PATIENT
  Sex: Female

DRUGS (3)
  1. ACLASTA [Suspect]
     Indication: OSTEOPOROSIS
     Dosage: UNK UKN, UNK
     Dates: start: 20091111
  2. ACLASTA [Suspect]
     Dosage: UNK UKN, UNK
     Dates: start: 20101111
  3. ACLASTA [Suspect]
     Dosage: UNK UKN, UNK
     Dates: start: 20111109

REACTIONS (2)
  - Death [Fatal]
  - Tooth fracture [Unknown]
